FAERS Safety Report 11360338 (Version 1)
Quarter: 2015Q3

REPORT INFORMATION
  Report Type: Report from Study
  Country: US (occurrence: US)
  Receive Date: 20150810
  Receipt Date: 20150810
  Transmission Date: 20151125
  Serious: Yes (Hospitalization, Other)
  Sender: FDA-Public Use
  Company Number: PHEH2014US021917

PATIENT
  Sex: Female

DRUGS (5)
  1. EXTAVIA [Suspect]
     Active Substance: INTERFERON BETA-1B
     Dosage: WEEKS 5 TO 6, 0.1875MG (0.75ML)
     Route: 058
  2. EXTAVIA [Suspect]
     Active Substance: INTERFERON BETA-1B
     Dosage: WEEKS 3 TO 4, 0.125 MG (0.5ML)
     Route: 058
  3. EXTAVIA [Suspect]
     Active Substance: INTERFERON BETA-1B
     Indication: MULTIPLE SCLEROSIS
     Dosage: WEEK 1 TO 2, 0.0625 MG (0.25 ML)
     Route: 058
     Dates: start: 20140710
  4. EXTAVIA [Suspect]
     Active Substance: INTERFERON BETA-1B
     Dosage: UNK
     Route: 058
  5. EXTAVIA [Suspect]
     Active Substance: INTERFERON BETA-1B
     Dosage: WEEKS 7 + , 0.25MG (1ML)
     Route: 058
     Dates: end: 20140830

REACTIONS (7)
  - Multiple sclerosis relapse [Unknown]
  - Impaired self-care [Unknown]
  - Liver disorder [Unknown]
  - Feeling abnormal [Unknown]
  - Influenza like illness [Unknown]
  - Dysstasia [Unknown]
  - Dysarthria [Unknown]
